FAERS Safety Report 7362532-6 (Version None)
Quarter: 2011Q1

REPORT INFORMATION
  Report Type: 
  Country: None (occurrence: None)
  Receive Date: 20110318
  Receipt Date: 20100623
  Transmission Date: 20110831
  Serious: Yes (Life-Threatening)
  Sender: FDA-Public Use
  Company Number: JP-ASTRAZENECA-2010SE27112

PATIENT
  Age: 34050 Day
  Sex: Male

DRUGS (33)
  1. BAKTAR [Concomitant]
     Indication: BRONCHITIS CHRONIC
     Route: 048
     Dates: start: 20100522, end: 20100525
  2. NEOPHYLLIN [Concomitant]
     Indication: ASTHMA
     Dosage: 2A DAILY
     Dates: start: 20100528, end: 20100531
  3. DIGILANOGEN [Concomitant]
     Indication: TACHYCARDIA
     Dosage: 1A DAILY
     Dates: start: 20100602, end: 20100602
  4. HALFDIGOXIN-KY [Concomitant]
     Indication: CARDIAC FAILURE CHRONIC
     Route: 048
     Dates: start: 20100522, end: 20100602
  5. TSUMURA 54 YOKUKANSAN EKISU [Concomitant]
     Indication: AGITATION
     Route: 048
     Dates: start: 20100522, end: 20100602
  6. BAKTAR [Concomitant]
     Route: 048
     Dates: start: 20100526, end: 20100531
  7. GANATON [Concomitant]
     Indication: GASTROSTOMY
     Route: 048
     Dates: start: 20100522, end: 20100602
  8. MUCODYNE [Concomitant]
     Indication: BRONCHITIS CHRONIC
     Route: 048
     Dates: start: 20100522, end: 20100602
  9. BANAN [Concomitant]
     Route: 048
     Dates: start: 20100526, end: 20100530
  10. CALONAL [Concomitant]
     Indication: PYREXIA
     Route: 048
     Dates: start: 20100522, end: 20100525
  11. THEO-DUR [Concomitant]
     Indication: ASTHMA
     Route: 048
     Dates: start: 20100531, end: 20100602
  12. NEOPHYLLIN [Concomitant]
     Dosage: 1A DAILY
     Dates: start: 20100601, end: 20100602
  13. KLARICID [Concomitant]
     Indication: BRONCHITIS
     Route: 048
     Dates: start: 20100520, end: 20100522
  14. YOKU-KAN-SAN [Concomitant]
     Route: 048
     Dates: start: 20100522, end: 20100602
  15. ZITHROMAX [Concomitant]
     Indication: BRONCHITIS
     Route: 048
     Dates: start: 20100601, end: 20100601
  16. URINORM [Concomitant]
     Indication: HYPERURICAEMIA
     Route: 048
     Dates: start: 20100522, end: 20100602
  17. GENINAX [Concomitant]
     Indication: BRONCHITIS
     Route: 048
     Dates: start: 20100522, end: 20100525
  18. DIGILANOGEN [Concomitant]
     Indication: ATRIAL FIBRILLATION
     Dosage: 1A DAILY
     Dates: start: 20100602, end: 20100602
  19. DIART [Concomitant]
     Indication: ATRIAL FIBRILLATION
     Route: 048
     Dates: start: 20100522, end: 20100602
  20. HALFDIGOXIN-KY [Concomitant]
     Indication: ATRIAL FIBRILLATION
     Route: 048
     Dates: start: 20100522, end: 20100602
  21. OPALMON [Concomitant]
     Indication: VERTEBRAL COLUMN MASS
     Route: 048
     Dates: start: 20100522, end: 20100602
  22. TSUMURA 54 YOKUKANSAN EKISU [Concomitant]
     Indication: DEMENTIA
     Route: 048
     Dates: start: 20100522, end: 20100602
  23. GASPORT [Concomitant]
     Indication: GASTRITIS
     Route: 048
     Dates: start: 20100522, end: 20100602
  24. VANCOMYCIN HYDROCHLORIDE [Concomitant]
     Indication: BRONCHITIS
     Route: 048
     Dates: start: 20100531, end: 20100602
  25. SOLU-MEDROL [Concomitant]
     Indication: INTERSTITIAL LUNG DISEASE
     Dates: start: 20100531, end: 20100602
  26. DIART [Concomitant]
     Indication: CARDIAC FAILURE CHRONIC
     Route: 048
     Dates: start: 20100522, end: 20100602
  27. MEVALOTIN [Concomitant]
     Indication: HYPERLIPIDAEMIA
     Route: 048
     Dates: start: 20100522, end: 20100602
  28. MEROPEN [Suspect]
     Indication: BRONCHITIS
     Route: 042
     Dates: end: 20100531
  29. GENINAX [Concomitant]
     Route: 048
     Dates: start: 20100522, end: 20100525
  30. BANAN [Concomitant]
     Indication: BRONCHITIS
     Route: 048
     Dates: start: 20100525, end: 20100530
  31. CALONAL [Concomitant]
     Route: 048
     Dates: start: 20100526, end: 20100531
  32. MEILAX [Concomitant]
     Indication: INSOMNIA
     Route: 048
     Dates: start: 20100522, end: 20100602
  33. ALOSENIN [Concomitant]
     Indication: CONSTIPATION
     Route: 048
     Dates: start: 20100522, end: 20100602

REACTIONS (1)
  - INTERSTITIAL LUNG DISEASE [None]
